FAERS Safety Report 6504345-0 (Version None)
Quarter: 2009Q4

REPORT INFORMATION
  Report Type: 
  Country: None (occurrence: None)
  Receive Date: 20091217
  Receipt Date: 20091207
  Transmission Date: 20100525
  Serious: Yes (Hospitalization)
  Sender: FDA-Public Use
  Company Number: DE-ELI_LILLY_AND_COMPANY-DE200910002648

PATIENT
  Sex: Female

DRUGS (8)
  1. HUMULIN R [Suspect]
     Indication: TYPE 2 DIABETES MELLITUS
     Dosage: 50 U, DAILY (1/D) (20-16-14)
     Route: 058
     Dates: start: 20090501, end: 20090909
  2. DECORTIN [Concomitant]
     Dosage: 8 MG, UNKNOWN
     Route: 065
  3. APROVEL [Concomitant]
     Dosage: 300 D/F, UNKNOWN
  4. GABAPENTIN [Concomitant]
     Dosage: 300 D/F, UNKNOWN
     Route: 065
  5. FUROSEMIDE [Concomitant]
     Dosage: 40 D/F, UNKNOWN
     Route: 065
  6. PANTOZOL [Concomitant]
     Dosage: 40 D/F, UNKNOWN
     Route: 065
  7. SPIRIVA [Concomitant]
     Dosage: 18 UG, UNKNOWN
     Route: 065
  8. SINGULAIR [Concomitant]
     Dosage: 10 D/F, UNKNOWN
     Route: 065

REACTIONS (4)
  - OPEN WOUND [None]
  - PRURITUS [None]
  - RASH [None]
  - SECRETION DISCHARGE [None]
